FAERS Safety Report 7923667-X (Version None)
Quarter: 2011Q4

REPORT INFORMATION
  Report Type: 
  Country: None (occurrence: None)
  Receive Date: 20111117
  Receipt Date: 20110207
  Transmission Date: 20120403
  Serious: No
  Sender: FDA-Public Use
  Company Number: US-AMGEN-USASP2011007398

PATIENT
  Age: 62 Year
  Sex: Male
  Weight: 100.68 kg

DRUGS (14)
  1. NASONEX [Concomitant]
     Dosage: UNK
  2. COZAAR [Concomitant]
     Dosage: 25 MG, UNK
  3. FOLIC ACID [Concomitant]
     Dosage: 1 MG, UNK
  4. TOPROL-XL [Concomitant]
     Dosage: 25 MG, UNK
  5. MULTIVITAMIN                       /00097801/ [Concomitant]
     Dosage: UNK
  6. ASTELIN [Concomitant]
     Dosage: UNK
  7. LIPITOR [Concomitant]
     Dosage: 10 MG, UNK
  8. VOLTAREN [Concomitant]
     Dosage: 25 MG, UNK
  9. METHOTREXATE [Concomitant]
     Dosage: UNK
  10. CORTISONE                          /00028601/ [Concomitant]
     Dosage: UNK
  11. PREDNISONE TAB [Concomitant]
     Dosage: 1 MG, UNK
  12. ZANTAC [Concomitant]
     Dosage: 150 MG, UNK
  13. ASPIRINA ADULTOS [Concomitant]
     Dosage: 81 MG, UNK
  14. ENBREL [Suspect]
     Indication: RHEUMATOID ARTHRITIS
     Dosage: 50 MG, QWK
     Route: 058
     Dates: start: 20110124

REACTIONS (2)
  - RASH ERYTHEMATOUS [None]
  - SKIN DISORDER [None]
